FAERS Safety Report 6804730-3 (Version None)
Quarter: 2010Q2

REPORT INFORMATION
  Report Type: 
  Country: None (occurrence: None)
  Receive Date: 20100628
  Receipt Date: 20070503
  Transmission Date: 20101027
  Serious: No
  Sender: FDA-Public Use
  Company Number: US-PFIZER INC-2007035534

PATIENT
  Sex: Male
  Weight: 68.04 kg

DRUGS (5)
  1. XALATAN [Suspect]
     Indication: GLAUCOMA
     Route: 031
     Dates: start: 20030101
  2. GLYBURIDE [Concomitant]
  3. METFORMIN HCL [Concomitant]
  4. VYTORIN [Concomitant]
  5. ARICEPT [Concomitant]

REACTIONS (1)
  - EYE IRRITATION [None]
